FAERS Safety Report 5594289-3 (Version None)
Quarter: 2008Q1

REPORT INFORMATION
  Report Type: 
  Country: None (occurrence: None)
  Receive Date: 20080115
  Receipt Date: 20080104
  Transmission Date: 20080703
  Serious: Yes (Other)
  Sender: FDA-Public Use
  Company Number: GXKR2008CN00526

PATIENT
  Age: 50 Year
  Sex: Male

DRUGS (7)
  1. MYCOPHENOLATE MOFETIL [Suspect]
     Indication: IMMUNOSUPPRESSION
  2. PREDNISONE [Suspect]
     Indication: IMMUNOSUPPRESSION
  3. TACROLIMUS [Concomitant]
  4. OFLOXACIN [Suspect]
     Indication: TUBERCULOSIS
  5. ISONIAZID [Suspect]
     Indication: TUBERCULOSIS
  6. RIFAPENTINE(RIFAPENTINE) [Suspect]
     Indication: TUBERCULOSIS
  7. ETHAMBUTOL HYDROCHLORIDE [Suspect]
     Indication: TUBERCULOSIS

REACTIONS (6)
  - BACTERIA SPUTUM IDENTIFIED [None]
  - DEPRESSION [None]
  - DRUG INTERACTION [None]
  - HEPATOTOXICITY [None]
  - STAPHYLOCOCCAL INFECTION [None]
  - TUBERCULOSIS [None]
